FAERS Safety Report 24588221 (Version 1)
Quarter: 2024Q4

REPORT INFORMATION
  Report Type: Report from Study
  Country: US (occurrence: US)
  Receive Date: 20241107
  Receipt Date: 20241107
  Transmission Date: 20250115
  Serious: Yes (Other)
  Sender: ALEXION PHARMACEUTICALS
  Company Number: US-AstraZeneca-CH-00728181A

PATIENT

DRUGS (4)
  1. OLAPARIB [Suspect]
     Active Substance: OLAPARIB
  2. OLAPARIB [Suspect]
     Active Substance: OLAPARIB
  3. OLAPARIB [Suspect]
     Active Substance: OLAPARIB
  4. OLAPARIB [Suspect]
     Active Substance: OLAPARIB

REACTIONS (10)
  - Adenocarcinoma [Unknown]
  - Ovarian cancer [Unknown]
  - Neoplasm [Unknown]
  - Myocardial infarction [Unknown]
  - Nausea [Unknown]
  - Speech disorder [Unknown]
  - Therapeutic product effect prolonged [Unknown]
  - Drug ineffective [Unknown]
  - HRD gene mutation assay negative [Unknown]
  - Therapy cessation [Unknown]
